FAERS Safety Report 10084477 (Version 2)
Quarter: 2014Q2

REPORT INFORMATION
  Report Type: Report from Study
  Country: CA (occurrence: CA)
  Receive Date: 20140417
  Receipt Date: 20140417
  Transmission Date: 20141212
  Serious: Yes (Hospitalization, Other)
  Sender: FDA-Public Use
  Company Number: CA-ABBVIE-14P-028-1211921-00

PATIENT
  Age: 78 Year
  Sex: Male

DRUGS (10)
  1. HUMIRA [Suspect]
     Indication: PRODUCT USED FOR UNKNOWN INDICATION
     Route: 058
     Dates: start: 20120528, end: 20130331
  2. ACCUPRIL [Concomitant]
     Indication: PRODUCT USED FOR UNKNOWN INDICATION
  3. ATORVASTATION [Concomitant]
     Indication: PRODUCT USED FOR UNKNOWN INDICATION
  4. CELEBREX [Concomitant]
     Indication: PRODUCT USED FOR UNKNOWN INDICATION
  5. MYLANNITRO [Concomitant]
     Indication: PRODUCT USED FOR UNKNOWN INDICATION
  6. NOVO DILTLAZEN HCL [Concomitant]
     Indication: PRODUCT USED FOR UNKNOWN INDICATION
  7. OMEPRAZOLE [Concomitant]
     Indication: PRODUCT USED FOR UNKNOWN INDICATION
  8. PRADAX [Concomitant]
     Indication: PRODUCT USED FOR UNKNOWN INDICATION
  9. TENSIMIN [Concomitant]
     Indication: PRODUCT USED FOR UNKNOWN INDICATION
  10. TYLENOL [Concomitant]
     Indication: PAIN IN EXTREMITY
     Dates: start: 20140219, end: 20140219

REACTIONS (4)
  - Pain in extremity [Recovered/Resolved]
  - Intermittent claudication [Recovered/Resolved]
  - Synovial cyst [Unknown]
  - Oedema [Unknown]
